FAERS Safety Report 8143449-6 (Version None)
Quarter: 2012Q1

REPORT INFORMATION
  Report Type: 
  Country: None (occurrence: None)
  Receive Date: 20120215
  Receipt Date: 20120215
  Transmission Date: 20120608
  Serious: Yes (Hospitalization)
  Sender: FDA-Public Use
  Company Number: None

PATIENT
  Sex: Female

DRUGS (1)
  1. REVATIO [Suspect]
     Dosage: 20 MG TID PO
     Route: 048
     Dates: start: 20090520

REACTIONS (4)
  - PALPITATIONS [None]
  - ANXIETY [None]
  - ATRIAL FIBRILLATION [None]
  - PNEUMONIA [None]
